FAERS Safety Report 18522072 (Version 2)
Quarter: 2020Q4

REPORT INFORMATION
  Report Type: Spontaneous
  Country: EG (occurrence: EG)
  Receive Date: 20201119
  Receipt Date: 20201129
  Transmission Date: 20210114
  Serious: Yes (Other)
  Sender: FDA-Public Use
  Company Number: EG-NOVOPROD-767239

PATIENT
  Age: 492 Month
  Sex: Female
  Weight: 73 kg

DRUGS (4)
  1. NOVORAPID [Suspect]
     Active Substance: INSULIN ASPART
     Indication: DIABETES MELLITUS
     Dosage: 12-14 IU AT BREAKFAST), (14-16 IU\ LUNCH) AND (12-14 IU\ DINNER )
     Route: 058
     Dates: start: 202005
  2. TOUJEO [Concomitant]
     Active Substance: INSULIN GLARGINE
     Indication: DIABETES MELLITUS
     Dosage: 30 IU, QD
     Route: 058
     Dates: start: 202005
  3. MILGA [Concomitant]
     Active Substance: BENFOTIAMINE\CYANOCOBALAMIN\PYRIDOXINE HYDROCHLORIDE
     Indication: NEUROPATHY PERIPHERAL
     Dosage: 2 TAB.\DAY, STARTED USING MILGA FROM10 OR 11 YEARS AGO.
     Route: 048
  4. THIOTACID [Concomitant]
     Active Substance: .ALPHA.-LIPOIC ACID
     Indication: NEUROPATHY PERIPHERAL
     Dosage: 1 TAB.\DAY
     Route: 048
     Dates: start: 20200519

REACTIONS (2)
  - Retinal fibrosis [Not Recovered/Not Resolved]
  - Retinal detachment [Not Recovered/Not Resolved]
